FAERS Safety Report 22752356 (Version 3)
Quarter: 2023Q4

REPORT INFORMATION
  Report Type: Spontaneous
  Country: CA (occurrence: CA)
  Receive Date: 20230726
  Receipt Date: 20231019
  Transmission Date: 20240109
  Serious: Yes (Other)
  Sender: FDA-Public Use
  Company Number: CA-PFIZER INC-202201166406

PATIENT
  Age: 6 Year
  Sex: Female

DRUGS (4)
  1. NGENLA [Suspect]
     Active Substance: SOMATROGON-GHLA
     Indication: Growth hormone deficiency
     Dosage: 13 MG, WEEKLY
     Route: 058
     Dates: start: 20220910
  2. NGENLA [Suspect]
     Active Substance: SOMATROGON-GHLA
     Dosage: 10 MG, WEEKLY (DISCCONTINUED)
     Route: 058
  3. NGENLA [Suspect]
     Active Substance: SOMATROGON-GHLA
     Dosage: 7 MG, WEEKLY (UNKNOWN FORMAT)
     Route: 058
  4. OMNITROPE [Concomitant]
     Active Substance: SOMATROPIN
     Dosage: UNK

REACTIONS (6)
  - Muscle hypertrophy [Unknown]
  - Breast enlargement [Unknown]
  - Weight increased [Unknown]
  - Injection site pain [Recovered/Resolved]
  - Pain in extremity [Not Recovered/Not Resolved]
  - Blood test abnormal [Not Recovered/Not Resolved]

NARRATIVE: CASE EVENT DATE: 20220910
